FAERS Safety Report 25385935 (Version 1)
Quarter: 2025Q2

REPORT INFORMATION
  Report Type: Spontaneous
  Country: US (occurrence: None)
  Receive Date: 20250531
  Receipt Date: 20250531
  Transmission Date: 20250716
  Serious: Yes (Disabling)
  Sender: FDA-CTU
  Company Number: None

PATIENT
  Age: 43 Year
  Sex: Male
  Weight: 82.35 kg

DRUGS (1)
  1. PAXIL [Suspect]
     Active Substance: PAROXETINE HYDROCHLORIDE
     Dates: start: 20020101

REACTIONS (4)
  - Withdrawal syndrome [None]
  - Impaired work ability [None]
  - Activities of daily living assessment [None]
  - General physical health deterioration [None]

NARRATIVE: CASE EVENT DATE: 20160303
